FAERS Safety Report 10372380 (Version 2)
Quarter: 2014Q3

REPORT INFORMATION
  Report Type: Spontaneous
  Country: US (occurrence: US)
  Receive Date: 20140808
  Receipt Date: 20140808
  Transmission Date: 20150326
  Serious: No
  Sender: FDA-Public Use
  Company Number: US-BRISTOL-MYERS SQUIBB COMPANY-19135920

PATIENT
  Age: 66 Year
  Sex: Male
  Weight: 93.42 kg

DRUGS (5)
  1. PRILOSEC [Concomitant]
     Active Substance: OMEPRAZOLE MAGNESIUM
  2. NEURONTIN [Concomitant]
     Active Substance: GABAPENTIN
  3. SPRYCEL [Suspect]
     Active Substance: DASATINIB
     Indication: METASTATIC MALIGNANT MELANOMA
     Dosage: LAST DOSE WAS EITHER SATURDAY OR SUNDAY
     Route: 048
     Dates: start: 20130621
  4. WARFARIN [Concomitant]
     Active Substance: WARFARIN
     Dosage: 5 MG THE REST OF THE WEEK
  5. LEXAPRO [Concomitant]
     Active Substance: ESCITALOPRAM OXALATE

REACTIONS (4)
  - Retching [Unknown]
  - Off label use [Unknown]
  - Drug dose omission [Unknown]
  - Dizziness [Unknown]

NARRATIVE: CASE EVENT DATE: 20130723
